FAERS Safety Report 15856565 (Version 3)
Quarter: 2019Q1

REPORT INFORMATION
  Report Type: Spontaneous
  Country: US (occurrence: US)
  Receive Date: 20190123
  Receipt Date: 20190206
  Transmission Date: 20190417
  Serious: Yes (Hospitalization, Other)
  Sender: FDA-Public Use
  Company Number: US-TERSERA THERAPEUTICS LLC-2019TRS000014

PATIENT

DRUGS (3)
  1. PRIALT [Suspect]
     Active Substance: ZICONOTIDE ACETATE
     Dosage: 8.5 MCG
     Route: 037
  2. PRIALT [Suspect]
     Active Substance: ZICONOTIDE ACETATE
     Indication: PAIN
     Dosage: 9 MCG
     Route: 037
     Dates: start: 20190111
  3. PRIALT [Suspect]
     Active Substance: ZICONOTIDE ACETATE
     Dosage: 8 ?G/ML, QD
     Route: 037
     Dates: end: 20190114

REACTIONS (10)
  - Mental disorder [Unknown]
  - Lacrimation increased [Recovering/Resolving]
  - Confusional state [Recovering/Resolving]
  - Generalised tonic-clonic seizure [Unknown]
  - Unresponsive to stimuli [Unknown]
  - Tunnel vision [Recovering/Resolving]
  - Mental status changes [Not Recovered/Not Resolved]
  - Feeling abnormal [None]
  - Balance disorder [Recovering/Resolving]
  - Dizziness [Unknown]
